FAERS Safety Report 5290247-7 (Version None)
Quarter: 2007Q2

REPORT INFORMATION
  Report Type: 
  Country: None (occurrence: None)
  Receive Date: 20070402
  Receipt Date: 20070320
  Transmission Date: 20071010
  Serious: Yes (Other)
  Sender: FDA-Public Use
  Company Number: ENC200700030

PATIENT
  Age: 64 Year
  Sex: Male

DRUGS (20)
  1. ARGATROBAN [Suspect]
     Indication: DEEP VEIN THROMBOSIS
     Dosage: SEE IMAGE
     Route: 042
     Dates: start: 20070207, end: 20070201
  2. ARGATROBAN [Suspect]
     Indication: HEPARIN-INDUCED THROMBOCYTOPENIA
     Dosage: SEE IMAGE
     Route: 042
     Dates: start: 20070207, end: 20070201
  3. ARGATROBAN [Suspect]
     Indication: DEEP VEIN THROMBOSIS
     Dosage: SEE IMAGE
     Route: 042
     Dates: start: 20070201, end: 20070220
  4. ARGATROBAN [Suspect]
     Indication: HEPARIN-INDUCED THROMBOCYTOPENIA
     Dosage: SEE IMAGE
     Route: 042
     Dates: start: 20070201, end: 20070220
  5. ARGATROBAN [Suspect]
     Indication: DEEP VEIN THROMBOSIS
     Dosage: SEE IMAGE
     Route: 042
     Dates: start: 20070220, end: 20070228
  6. ARGATROBAN [Suspect]
     Indication: HEPARIN-INDUCED THROMBOCYTOPENIA
     Dosage: SEE IMAGE
     Route: 042
     Dates: start: 20070220, end: 20070228
  7. ARGATROBAN [Suspect]
     Indication: DEEP VEIN THROMBOSIS
     Dosage: SEE IMAGE
     Route: 042
     Dates: start: 20070228, end: 20070303
  8. ARGATROBAN [Suspect]
     Indication: HEPARIN-INDUCED THROMBOCYTOPENIA
     Dosage: SEE IMAGE
     Route: 042
     Dates: start: 20070228, end: 20070303
  9. LANSOPRAZOL (LANSOPRAZOLE) [Concomitant]
  10. PRIMAXIN /00788801/(IMIPENEM) [Concomitant]
  11. FOLIC ACID [Concomitant]
  12. METOCLOPRAMIDE [Concomitant]
  13. ALBUTEROL /00139501/ (SALBUTAMOL) [Concomitant]
  14. TPN [Concomitant]
  15. ONDANSETRON HCL [Concomitant]
  16. INSULIN (INSULIN) [Concomitant]
  17. TYLENOL [Concomitant]
  18. ALPRAZOLAM [Concomitant]
  19. HEPARIN [Concomitant]
  20. ANTIBIOTICS [Concomitant]

REACTIONS (6)
  - ACTIVATED PARTIAL THROMBOPLASTIN TIME PROLONGED [None]
  - ASPARTATE AMINOTRANSFERASE INCREASED [None]
  - BLOOD BILIRUBIN INCREASED [None]
  - CONDITION AGGRAVATED [None]
  - RENAL FAILURE ACUTE [None]
  - SEPTIC SHOCK [None]
